FAERS Safety Report 8909599 (Version 3)
Quarter: 2013Q1

REPORT INFORMATION
  Report Type: Spontaneous
  Country: US (occurrence: US)
  Receive Date: 20121114
  Receipt Date: 20130307
  Transmission Date: 20140127
  Serious: Yes (Hospitalization)
  Sender: FDA-Public Use
  Company Number: US-009507513-1211USA005557

PATIENT
  Age: 70 Year
  Sex: Male

DRUGS (9)
  1. ZOCOR [Suspect]
     Indication: HYPERCHOLESTEROLAEMIA
     Dosage: 10 MG, PRN
     Route: 048
  2. ZOCOR [Suspect]
     Indication: HYPERLIPIDAEMIA
     Dosage: 20 MG DAILY
     Route: 048
     Dates: start: 20091221, end: 20091224
  3. LYRICA [Suspect]
     Dosage: 50 MG, TID
  4. LYRICA [Suspect]
     Dosage: 100 MG, TID
     Dates: start: 20091221, end: 20091224
  5. ZESTRIL [Concomitant]
     Dosage: 5 MG, QD
     Dates: start: 20091217, end: 20091220
  6. GLUCOPHAGE [Concomitant]
     Dosage: 500 MG, BID
  7. AMITRIPTYLINE HYDROCHLORIDE [Concomitant]
     Dosage: 25 MG AM, 50 MG PM
  8. OXYCODONE HYDROCHLORIDE [Concomitant]
     Dosage: 80 MG EVERY 8 HOURS
  9. OXYCODONE HYDROCHLORIDE [Concomitant]
     Dosage: 30 MG EVERY 4 HOURS AS NEEDED

REACTIONS (1)
  - Rhabdomyolysis [Recovered/Resolved]
